FAERS Safety Report 22538449 (Version 1)
Quarter: 2023Q2

REPORT INFORMATION
  Report Type: Spontaneous
  Country: ES (occurrence: ES)
  Receive Date: 20230609
  Receipt Date: 20230609
  Transmission Date: 20230721
  Serious: Yes (Other)
  Sender: FDA-Public Use
  Company Number: None

PATIENT
  Age: 62 Year
  Sex: Male

DRUGS (9)
  1. ACETAMINOPHEN\TRAMADOL [Suspect]
     Active Substance: ACETAMINOPHEN\TRAMADOL
     Indication: Arthroscopy
     Dosage: 1 DOSAGE FORM, EVERY 8 HRS
     Route: 048
     Dates: start: 20230511, end: 20230513
  2. METAMIZOLE MAGNESIUM [Concomitant]
     Active Substance: METAMIZOLE MAGNESIUM
     Indication: Chest pain
     Dosage: 575 MILLIGRAM, 3/DAY
     Route: 048
     Dates: start: 20230427, end: 20230503
  3. ELIDEL [Concomitant]
     Active Substance: PIMECROLIMUS
     Indication: Seborrhoea
     Dosage: 1 DOSAGE FORM, 1/DAY
     Route: 061
     Dates: start: 20230221
  4. ACETAMINOPHEN [Concomitant]
     Active Substance: ACETAMINOPHEN
     Indication: Chest pain
     Dosage: 1 GRAM, 3/DAY
     Route: 048
     Dates: start: 20230427
  5. HYDROCHLOROTHIAZIDE\OLMESARTAN MEDOXOMIL [Concomitant]
     Active Substance: HYDROCHLOROTHIAZIDE\OLMESARTAN MEDOXOMIL
     Indication: Hypertension
     Dosage: 20 MILLIGRAM, 1/DAY
     Route: 048
     Dates: start: 20230203
  6. SIMVASTATINA CINFA [Concomitant]
     Indication: Hyperlipidaemia
     Dosage: 10 MILLIGRAM, 1/DAY
     Route: 048
     Dates: start: 20161129
  7. LORAZEPAM [Concomitant]
     Active Substance: LORAZEPAM
     Indication: Insomnia
     Dosage: 1.5 MILLIGRAM, 1/DAY
     Route: 048
     Dates: start: 20230403
  8. OMEPRAZOLE [Concomitant]
     Active Substance: OMEPRAZOLE
     Indication: Spinal osteoarthritis
     Dosage: 20 MILLIGRAM, 1/DAY
     Route: 048
     Dates: start: 20140806
  9. ASPIRIN [Concomitant]
     Active Substance: ASPIRIN
     Indication: Peripheral vascular disorder
     Dosage: 100 MILLIGRAM, 1/DAY
     Route: 048
     Dates: start: 20190522

REACTIONS (2)
  - Conjunctival haemorrhage [Recovering/Resolving]
  - Jaundice [Recovered/Resolved]

NARRATIVE: CASE EVENT DATE: 20230512
